FAERS Safety Report 5146661-3 (Version None)
Quarter: 2006Q4

REPORT INFORMATION
  Report Type: 
  Country: None (occurrence: None)
  Receive Date: 20061102
  Receipt Date: 20061017
  Transmission Date: 20070319
  Serious: Yes (Hospitalization)
  Sender: FDA-Public Use
  Company Number: 2004BI001637

PATIENT
  Age: 42 Year
  Sex: Female
  Weight: 108.8633 kg

DRUGS (7)
  1. AVONEX [Suspect]
     Indication: MULTIPLE SCLEROSIS
     Dosage: 30 UG; QW; IM
     Route: 045
     Dates: start: 20030610, end: 20030806
  2. AVONEX [Suspect]
     Indication: MULTIPLE SCLEROSIS
     Dosage: 30 UG; QW; IM
     Route: 030
     Dates: start: 20030903
  3. BENICAR [Concomitant]
  4. ZOLOFT [Concomitant]
  5. BUSPAR [Concomitant]
  6. LOPRESSOR [Concomitant]
  7. LOESTRIN [Concomitant]

REACTIONS (2)
  - KNEE ARTHROPLASTY [None]
  - OSTEOARTHRITIS [None]
